FAERS Safety Report 5595152-4 (Version None)
Quarter: 2008Q1

REPORT INFORMATION
  Report Type: 
  Country: None (occurrence: None)
  Receive Date: 20080117
  Receipt Date: 20080110
  Transmission Date: 20080703
  Serious: Yes (Death)
  Sender: FDA-Public Use
  Company Number: US-ROXANE LABORATORIES, INC-2008-DE-00195GD

PATIENT
  Sex: Female

DRUGS (2)
  1. MORPHINE [Suspect]
     Dosage: 3 DOSES
  2. MIDAZOLAM HCL [Suspect]

REACTIONS (1)
  - OVERDOSE [None]
